FAERS Safety Report 5486309-1 (Version None)
Quarter: 2007Q4

REPORT INFORMATION
  Report Type: 
  Country: None (occurrence: None)
  Receive Date: 20071016
  Receipt Date: 20071012
  Transmission Date: 20080405
  Serious: Yes (Disabling)
  Sender: FDA-Public Use
  Company Number: PHNR2007AU01975

PATIENT
  Age: 77 Year
  Sex: Male

DRUGS (6)
  1. DEXAMETHASONE 0.5MG TAB [Concomitant]
     Indication: PROSTATE CANCER
     Dosage: 2 DOSE UNSPECIFIED, DAILY
     Dates: start: 20050628, end: 20051207
  2. UREX [Concomitant]
  3. NORVASC [Concomitant]
  4. ACIMAX [Concomitant]
  5. PREDNEFRIN FORTE [Concomitant]
     Route: 031
  6. ZOMETA [Suspect]
     Indication: PROSTATE CANCER
     Dosage: 4 MG, UNK
     Route: 042
     Dates: start: 20040910, end: 20051121

REACTIONS (9)
  - BONE DISORDER [None]
  - DYSAESTHESIA [None]
  - GINGIVAL SWELLING [None]
  - HYPOAESTHESIA ORAL [None]
  - IMPAIRED HEALING [None]
  - OSTEONECROSIS [None]
  - PAIN IN JAW [None]
  - SOFT TISSUE INFECTION [None]
  - TOOTH EXTRACTION [None]
